FAERS Safety Report 8144090-1 (Version None)
Quarter: 2012Q1

REPORT INFORMATION
  Report Type: 
  Country: None (occurrence: None)
  Receive Date: 20120217
  Receipt Date: 20120204
  Transmission Date: 20120608
  Serious: Yes (Death)
  Sender: FDA-Public Use
  Company Number: IT-CELGENEUS-083-21880-12020529

PATIENT

DRUGS (1)
  1. REVLIMID [Suspect]
     Indication: LYMPHOMA
     Route: 048

REACTIONS (2)
  - PNEUMOTHORAX [None]
  - CARDIOPULMONARY FAILURE [None]
